APPROVED DRUG PRODUCT: PERIKABIVEN IN PLASTIC CONTAINER
Active Ingredient: AMINO ACIDS; CALCIUM CHLORIDE; DEXTROSE; MAGNESIUM SULFATE; POTASSIUM CHLORIDE; SODIUM ACETATE; SODIUM GLYCEROPHOSPHATE; SOYBEAN OIL
Strength: 2.4%;20MG/100ML;6.8GM/100ML;68MG/100ML;124MG/100ML;170MG/100ML;105MG/100ML;3.5GM/100ML (1920ML)
Dosage Form/Route: EMULSION;INTRAVENOUS
Application: N200656 | Product #002
Applicant: FRESENIUS KABI USA LLC
Approved: Aug 25, 2014 | RLD: Yes | RS: Yes | Type: RX

PATENTS:
Patent 12390398 | Expires: May 3, 2036